FAERS Safety Report 8542925-1 (Version None)
Quarter: 2012Q3

REPORT INFORMATION
  Report Type: 
  Country: None (occurrence: None)
  Receive Date: 20120716
  Receipt Date: 20120702
  Transmission Date: 20120928
  Serious: Yes (Other)
  Sender: FDA-Public Use
  Company Number: VAL_00710_2012

PATIENT
  Sex: Female

DRUGS (3)
  1. PEGASYS [Suspect]
     Indication: HEPATITIS C
     Dosage: 135 UG 1X/WEEK SUBCUTANEOUS
     Route: 058
     Dates: start: 20110415, end: 20120203
  2. ROCALTROL [Suspect]
     Indication: HEPATITIS C
     Dosage: 0.25 UG BID ORAL
     Route: 048
     Dates: start: 20110415, end: 20120209
  3. COPEGUS [Suspect]
     Dosage: 300 MG BID ORAL
     Route: 048
     Dates: start: 20110415, end: 20120209

REACTIONS (1)
  - PLATELET COUNT DECREASED [None]
